FAERS Safety Report 5854260-0 (Version None)
Quarter: 2008Q3

REPORT INFORMATION
  Report Type: 
  Country: None (occurrence: None)
  Receive Date: 20080822
  Receipt Date: 20080820
  Transmission Date: 20090109
  Serious: Yes (Death, Hospitalization, Other)
  Sender: FDA-Public Use
  Company Number: PHBS2008US05463

PATIENT
  Age: 64 Year
  Sex: Female

DRUGS (6)
  1. CYCLOSPORINE [Suspect]
     Indication: HEART TRANSPLANT
     Route: 065
  2. MYCOPHENOLATE MOFETIL [Suspect]
     Indication: HEART TRANSPLANT
     Route: 065
  3. PREDNISONE TAB [Suspect]
     Indication: HEART TRANSPLANT
     Route: 065
  4. METHYLPREDNISOLONE [Concomitant]
     Indication: TRANSPLANT REJECTION
     Route: 042
  5. RITUXIMAB [Concomitant]
     Indication: TRANSPLANT REJECTION
     Route: 065
  6. PLASMAPHERESIS [Concomitant]
     Indication: TRANSPLANT REJECTION
     Route: 065

REACTIONS (18)
  - ACUTE ABDOMEN [None]
  - ASTHENIA [None]
  - BRONCHOPULMONARY ASPERGILLOSIS [None]
  - CARDIAC FAILURE CONGESTIVE [None]
  - COLECTOMY [None]
  - COUGH [None]
  - CYTOMEGALOVIRUS INFECTION [None]
  - DIVERTICULITIS [None]
  - FATIGUE [None]
  - GASTROINTESTINAL HAEMORRHAGE [None]
  - HAEMODYNAMIC INSTABILITY [None]
  - INTRACARDIAC THROMBUS [None]
  - LARGE INTESTINE PERFORATION [None]
  - LEFT VENTRICULAR DYSFUNCTION [None]
  - LEFT VENTRICULAR HYPERTROPHY [None]
  - PANCYTOPENIA [None]
  - PYREXIA [None]
  - TRANSPLANT REJECTION [None]
